FAERS Safety Report 4298495-X (Version None)
Quarter: 2004Q1

REPORT INFORMATION
  Report Type: 
  Country: None (occurrence: None)
  Receive Date: 20040218
  Receipt Date: 20031117
  Transmission Date: 20041129
  Serious: Yes (Hospitalization, Other)
  Sender: FDA-Public Use
  Company Number: US-BRISTOL-MYERS SQUIBB COMPANY-12441606

PATIENT
  Age: 42 Year
  Sex: Female

DRUGS (8)
  1. STADOL [Suspect]
     Indication: MIGRAINE
  2. STADOL [Suspect]
     Indication: MIGRAINE
  3. MAXALT [Concomitant]
  4. PHENERGAN [Concomitant]
     Indication: NAUSEA
  5. IMITREX [Concomitant]
     Indication: MIGRAINE
  6. AMITRIPTYLINE [Concomitant]
     Indication: MIGRAINE
  7. INDERAL [Concomitant]
     Indication: MIGRAINE
     Route: 030
  8. KLONOPIN [Concomitant]

REACTIONS (7)
  - DEPENDENCE [None]
  - DRUG ADDICT [None]
  - GENERALISED ANXIETY DISORDER [None]
  - HEADACHE [None]
  - MAJOR DEPRESSION [None]
  - OVERDOSE [None]
  - SUICIDAL IDEATION [None]
